FAERS Safety Report 5335897-4 (Version None)
Quarter: 2007Q1

REPORT INFORMATION
  Report Type: 
  Country: None (occurrence: None)
  Receive Date: 20070301
  Receipt Date: 20060911
  Transmission Date: 20070707
  Serious: Yes (Other)
  Sender: FDA-Public Use
  Company Number: 2006097512

PATIENT
  Age: 48 Year
  Sex: Male
  Weight: 63.5036 kg

DRUGS (1)
  1. RELPAX [Suspect]
     Indication: MIGRAINE
     Dosage: 40 MG (20 MG)
     Dates: start: 20060803, end: 20060801

REACTIONS (3)
  - MUSCLE TIGHTNESS [None]
  - TENSION HEADACHE [None]
  - THROAT TIGHTNESS [None]
